FAERS Safety Report 21506909 (Version 3)
Quarter: 2023Q1

REPORT INFORMATION
  Report Type: Report from Study
  Country: US (occurrence: None)
  Receive Date: 20221026
  Receipt Date: 20230228
  Transmission Date: 20230418
  Serious: Yes (Hospitalization)
  Sender: FDA-Public Use
  Company Number: US-ROCHE-3205294

PATIENT
  Age: 57 Year
  Sex: Male

DRUGS (20)
  1. FARICIMAB [Suspect]
     Active Substance: FARICIMAB
     Indication: Diabetic retinal oedema
     Dosage: START DATE OF MOST RECENT DOSE OF STUDY DRUG PRIOR TO SAE: 08/AUG/2022 AT 11:05 AM
     Route: 050
     Dates: start: 20210121
  2. RANIBIZUMAB [Suspect]
     Active Substance: RANIBIZUMAB
     Indication: Diabetic retinal oedema
     Route: 065
     Dates: start: 20210121
  3. FARICIMAB [Suspect]
     Active Substance: FARICIMAB
     Indication: Diabetic retinal oedema
     Dosage: START DATE OF MOST RECENT DOSE OF STUDY DRUG PRIOR TO SAE; 08-AUG-2022 11:35 AM?DOSE LAST STUDY DRUG
     Route: 050
  4. INSULIN DETEMIR [Concomitant]
     Active Substance: INSULIN DETEMIR
     Indication: Type 2 diabetes mellitus
     Route: 058
     Dates: start: 201506
  5. ALOGLIPTIN [Concomitant]
     Active Substance: ALOGLIPTIN
     Indication: Type 2 diabetes mellitus
     Route: 048
     Dates: start: 201804
  6. ATORVASTATIN [Concomitant]
     Active Substance: ATORVASTATIN
     Indication: Hyperlipidaemia
     Route: 048
     Dates: start: 201804
  7. LISINOPRIL [Concomitant]
     Active Substance: LISINOPRIL
     Indication: Hypertension
     Route: 048
     Dates: start: 20181218
  8. FLUTICASONE [Concomitant]
     Active Substance: FLUTICASONE
     Indication: Seasonal allergy
     Dosage: 50MCG/INH
     Route: 055
     Dates: start: 201612
  9. LORATADINE [Concomitant]
     Active Substance: LORATADINE
     Indication: Seasonal allergy
     Route: 048
     Dates: start: 20181203
  10. ASPIRIN [Concomitant]
     Active Substance: ASPIRIN
     Route: 048
     Dates: start: 2008
  11. BOS TAURUS BILE [Concomitant]
     Active Substance: BOS TAURUS BILE
     Route: 048
     Dates: start: 20200513
  12. CLOPIDOGREL [Concomitant]
     Active Substance: CLOPIDOGREL BISULFATE
     Indication: Myocardial infarction
     Route: 048
     Dates: start: 20211117
  13. METOPROLOL [Concomitant]
     Active Substance: METOPROLOL
     Indication: Myocardial infarction
     Route: 048
     Dates: start: 20211113
  14. HYOSCYAMINE [Concomitant]
     Active Substance: HYOSCYAMINE
     Indication: Irritable bowel syndrome
     Route: 048
     Dates: start: 20220301
  15. INSULIN GLARGINE [Concomitant]
     Active Substance: INSULIN GLARGINE
     Indication: Type 2 diabetes mellitus
     Route: 058
     Dates: start: 20220917, end: 20220918
  16. INSULIN LISPRO [Concomitant]
     Active Substance: INSULIN LISPRO
     Indication: Type 2 diabetes mellitus
     Route: 058
     Dates: start: 20220917, end: 20220919
  17. INSULIN NOS [Concomitant]
     Active Substance: INSULIN NOS
     Indication: Type 2 diabetes mellitus
     Route: 058
     Dates: start: 20220917, end: 20220917
  18. PRAVASTATIN [Concomitant]
     Active Substance: PRAVASTATIN
     Indication: Hyperlipidaemia
     Route: 048
     Dates: start: 20220917, end: 20220918
  19. AMOXICILLIN [Concomitant]
     Active Substance: AMOXICILLIN
     Indication: Skin ulcer
     Route: 048
     Dates: start: 20220902, end: 20220917
  20. XARELTO [Concomitant]
     Active Substance: RIVAROXABAN
     Route: 048
     Dates: start: 20220918, end: 20220919

REACTIONS (1)
  - Cellulitis [Recovered/Resolved]

NARRATIVE: CASE EVENT DATE: 20220910
